FAERS Safety Report 24294055 (Version 2)
Quarter: 2025Q3

REPORT INFORMATION
  Report Type: Spontaneous
  Country: US (occurrence: US)
  Receive Date: 20240906
  Receipt Date: 20250905
  Transmission Date: 20251021
  Serious: No
  Sender: DOMPE FARMACEUTICI
  Company Number: US-FARMAPROD-202404-1172

PATIENT
  Sex: Female

DRUGS (9)
  1. OXERVATE [Suspect]
     Active Substance: CENEGERMIN-BKBJ
     Indication: Neurotrophic keratopathy
     Route: 047
     Dates: start: 20240322
  2. OXERVATE [Suspect]
     Active Substance: CENEGERMIN-BKBJ
  3. OXERVATE [Suspect]
     Active Substance: CENEGERMIN-BKBJ
     Route: 047
     Dates: start: 20250407
  4. TYRVAYA [Concomitant]
     Active Substance: VARENICLINE TARTRATE
  5. VITAMINS [Concomitant]
     Active Substance: VITAMINS
  6. LEVOTHYROXINE SODIUM [Concomitant]
     Active Substance: LEVOTHYROXINE SODIUM
  7. NAPROXEN [Concomitant]
     Active Substance: NAPROXEN
  8. METHOTREXATE [Concomitant]
     Active Substance: METHOTREXATE
  9. HUMIRA(CF) [Concomitant]

REACTIONS (3)
  - Eye pain [Unknown]
  - Wrong technique in product usage process [Unknown]
  - Abnormal sensation in eye [Unknown]
